FAERS Safety Report 15501347 (Version 1)
Quarter: 2018Q4

REPORT INFORMATION
  Report Type: Spontaneous
  Country: CN (occurrence: CN)
  Receive Date: 20181015
  Receipt Date: 20181015
  Transmission Date: 20190205
  Serious: Yes (Hospitalization, Congenital Anomaly, Other)
  Sender: FDA-Public Use
  Company Number: PHHY2018CN120271

PATIENT
  Sex: Male

DRUGS (1)
  1. DEXAMETHASONE. [Suspect]
     Active Substance: DEXAMETHASONE
     Indication: 11-BETA-HYDROXYLASE DEFICIENCY
     Dosage: 0.75 MG, UNK
     Route: 065

REACTIONS (19)
  - Hepatic steatosis [Unknown]
  - Penis disorder [Unknown]
  - Adrenomegaly [Unknown]
  - Skin striae [Unknown]
  - Adrenogenital syndrome [Unknown]
  - Renin increased [Unknown]
  - Cushing^s syndrome [Recovering/Resolving]
  - Weight increased [Unknown]
  - Body tinea [Unknown]
  - Incorrect product administration duration [Recovered/Resolved]
  - Hyperinsulinaemia [Unknown]
  - Skin hyperpigmentation [Unknown]
  - Hyperuricaemia [Unknown]
  - Body height below normal [Unknown]
  - Hypertension [Recovering/Resolving]
  - Ecchymosis [Unknown]
  - Hyperlipidaemia [Unknown]
  - Overdose [Recovering/Resolving]
  - Acanthosis nigricans [Unknown]
